FAERS Safety Report 20095638 (Version 1)
Quarter: 2021Q4

REPORT INFORMATION
  Report Type: Spontaneous
  Country: US (occurrence: US)
  Receive Date: 20211122
  Receipt Date: 20211122
  Transmission Date: 20220303
  Serious: Yes (Other)
  Sender: FDA-Public Use
  Company Number: US-GLAXOSMITHKLINE-US2021GSK236923

PATIENT
  Sex: Female

DRUGS (20)
  1. ZANTAC [Suspect]
     Active Substance: RANITIDINE HYDROCHLORIDE
     Indication: Gastrooesophageal reflux disease
     Dosage: 25 MG,2-3 X DAILY
     Route: 065
     Dates: start: 199205, end: 202008
  2. ZANTAC [Suspect]
     Active Substance: RANITIDINE HYDROCHLORIDE
     Dosage: 75 MG, 2-3 X DAILY
     Route: 065
     Dates: start: 199205, end: 202008
  3. ZANTAC [Suspect]
     Active Substance: RANITIDINE HYDROCHLORIDE
     Dosage: 150 MG,2-3 X DAILY
     Route: 065
     Dates: start: 199205, end: 202008
  4. ZANTAC [Suspect]
     Active Substance: RANITIDINE HYDROCHLORIDE
     Dosage: 300 MG,2-3 X DAILY
     Route: 065
     Dates: start: 199205, end: 202008
  5. ZANTAC [Suspect]
     Active Substance: RANITIDINE HYDROCHLORIDE
     Indication: Gastrooesophageal reflux disease
     Dosage: 25 MG, 2-3 X DAILY
     Route: 065
     Dates: start: 199205, end: 202008
  6. ZANTAC [Suspect]
     Active Substance: RANITIDINE HYDROCHLORIDE
     Dosage: 75 MG, 2-3 X DAILY
     Route: 065
     Dates: start: 199205, end: 202008
  7. ZANTAC [Suspect]
     Active Substance: RANITIDINE HYDROCHLORIDE
     Dosage: 150 MG, 2-3 X DAILY
     Route: 065
     Dates: start: 199205, end: 202008
  8. ZANTAC [Suspect]
     Active Substance: RANITIDINE HYDROCHLORIDE
     Dosage: 300 MG, 2-3 X DAILY
     Route: 065
     Dates: start: 199205, end: 202008
  9. RANITIDINE HYDROCHLORIDE [Suspect]
     Active Substance: RANITIDINE HYDROCHLORIDE
     Indication: Gastrooesophageal reflux disease
     Dosage: 75 MG, 2-3 X DAILY
     Route: 065
     Dates: start: 199205, end: 202008
  10. RANITIDINE HYDROCHLORIDE [Suspect]
     Active Substance: RANITIDINE HYDROCHLORIDE
     Dosage: 150 MG, 2-3 X DAILY
     Route: 065
     Dates: start: 199205, end: 202008
  11. RANITIDINE HYDROCHLORIDE [Suspect]
     Active Substance: RANITIDINE HYDROCHLORIDE
     Dosage: 300 MG, 2-3 X DAILY
     Route: 065
     Dates: start: 199205, end: 202008
  12. RANITIDINE HYDROCHLORIDE [Suspect]
     Active Substance: RANITIDINE HYDROCHLORIDE
     Indication: Gastrooesophageal reflux disease
     Dosage: 75 MG,2-3 X DAILY
     Route: 065
     Dates: start: 199205, end: 202008
  13. RANITIDINE HYDROCHLORIDE [Suspect]
     Active Substance: RANITIDINE HYDROCHLORIDE
     Dosage: 150 MG,2-3 X DAILY
     Route: 065
     Dates: start: 199205, end: 202008
  14. RANITIDINE HYDROCHLORIDE [Suspect]
     Active Substance: RANITIDINE HYDROCHLORIDE
     Dosage: 300 MG,2-3 X DAILY
     Route: 065
     Dates: start: 199205, end: 202008
  15. RANITIDINE [Suspect]
     Active Substance: RANITIDINE
     Indication: Gastrooesophageal reflux disease
     Dosage: 75 MG, 2-3 X DAILY
     Route: 065
     Dates: start: 199205, end: 202008
  16. RANITIDINE [Suspect]
     Active Substance: RANITIDINE
     Dosage: 150 MG, 2-3 X DAILY
     Route: 065
     Dates: start: 199205, end: 202008
  17. RANITIDINE [Suspect]
     Active Substance: RANITIDINE
     Dosage: 300 MG, 2-3 X DAILY
     Route: 065
     Dates: start: 199205, end: 202008
  18. RANITIDINE [Suspect]
     Active Substance: RANITIDINE
     Indication: Gastrooesophageal reflux disease
     Dosage: 75 MG,2-3 X DAILY
     Route: 065
     Dates: start: 199205, end: 202008
  19. RANITIDINE [Suspect]
     Active Substance: RANITIDINE
     Dosage: 150 MG,2-3 X DAILY
     Route: 065
     Dates: start: 199205, end: 202008
  20. RANITIDINE [Suspect]
     Active Substance: RANITIDINE
     Dosage: 300  MG,2-3 X DAILY
     Route: 065
     Dates: start: 199205, end: 202008

REACTIONS (1)
  - Colorectal cancer [Unknown]
